FAERS Safety Report 5645353-1 (Version None)
Quarter: 2008Q1

REPORT INFORMATION
  Report Type: 
  Country: None (occurrence: None)
  Receive Date: 20080229
  Receipt Date: 20080228
  Transmission Date: 20080703
  Serious: Yes (Other)
  Sender: FDA-Public Use
  Company Number: B0510058A

PATIENT
  Sex: Male

DRUGS (2)
  1. KIVEXA [Suspect]
     Indication: HIV INFECTION
     Route: 065
  2. NEVIRAPINE [Suspect]
     Route: 065

REACTIONS (1)
  - HEPATIC ENZYME INCREASED [None]
